FAERS Safety Report 22243830 (Version 2)
Quarter: 2023Q2

REPORT INFORMATION
  Report Type: Report from Study
  Country: CA (occurrence: CA)
  Receive Date: 20230424
  Receipt Date: 20230627
  Transmission Date: 20230722
  Serious: Yes (Hospitalization, Other)
  Sender: FDA-Public Use
  Company Number: CA-ABBVIE-22K-028-4518725-00

PATIENT
  Age: 72 Year
  Sex: Male

DRUGS (2)
  1. LUPRON [Suspect]
     Active Substance: LEUPROLIDE ACETATE
     Indication: Prostate cancer
     Dosage: DOSE FORM: PRE-FILLED SYRINGE
     Route: 030
     Dates: start: 20190625
  2. LUPRON [Suspect]
     Active Substance: LEUPROLIDE ACETATE
     Dosage: DOSE FORM: PRE-FILLED SYRINGE
     Route: 030

REACTIONS (4)
  - Bipolar I disorder [Not Recovered/Not Resolved]
  - Respiratory disorder [Unknown]
  - Ventriculo-peritoneal shunt [Unknown]
  - Hydrocephalus [Unknown]

NARRATIVE: CASE EVENT DATE: 20220701
